FAERS Safety Report 15612710 (Version 1)
Quarter: 2018Q4

REPORT INFORMATION
  Report Type: Spontaneous
  Country: US (occurrence: US)
  Receive Date: 20181113
  Receipt Date: 20181113
  Transmission Date: 20190205
  Serious: Yes (Hospitalization)
  Sender: FDA-Public Use
  Company Number: US-PARI RESPIRATORY EQUIPMENT, INC.-2018PAR00077

PATIENT
  Age: 60 Year
  Sex: Male

DRUGS (29)
  1. ENOXAPARIN [Concomitant]
     Active Substance: ENOXAPARIN
  2. MIRTAZAPINE. [Concomitant]
     Active Substance: MIRTAZAPINE
  3. BENZONATATE. [Concomitant]
     Active Substance: BENZONATATE
  4. CALCIUM CITRATE + D3 [Concomitant]
  5. GABAPENTIN. [Concomitant]
     Active Substance: GABAPENTIN
  6. LEVEMIR [Concomitant]
     Active Substance: INSULIN DETEMIR
  7. NOVOLOG [Concomitant]
     Active Substance: INSULIN ASPART
  8. TACROLIMUS. [Concomitant]
     Active Substance: TACROLIMUS
  9. POTASSIUM CHLORIDE. [Concomitant]
     Active Substance: POTASSIUM CHLORIDE
  10. SLOW-MAG [Concomitant]
     Active Substance: MAGNESIUM CHLORIDE
  11. FUROSEMIDE. [Concomitant]
     Active Substance: FUROSEMIDE
  12. TACROLIMUS. [Concomitant]
     Active Substance: TACROLIMUS
  13. METOCLOPRAMIDE. [Concomitant]
     Active Substance: METOCLOPRAMIDE
  14. ACIDOPHILUS [Concomitant]
     Active Substance: LACTOBACILLUS ACIDOPHILUS
  15. KITABIS PAK [Suspect]
     Active Substance: TOBRAMYCIN
     Indication: IDIOPATHIC PULMONARY FIBROSIS
     Dosage: 300 MG, 2X/DAY EVERY 12 HOURS
     Route: 055
     Dates: start: 20180831
  16. MYCOPHENOLATE [Concomitant]
     Active Substance: MYCOPHENOLIC ACID
  17. LEVALBUTEROL. [Concomitant]
     Active Substance: LEVALBUTEROL
  18. SODIUM CHLORIDE. [Concomitant]
     Active Substance: SODIUM CHLORIDE
  19. DOCUSATE SODIUM. [Concomitant]
     Active Substance: DOCUSATE SODIUM
  20. PREDNISONE. [Concomitant]
     Active Substance: PREDNISONE
  21. NOXAFIL [Concomitant]
     Active Substance: POSACONAZOLE
  22. SMZ/TMP DS [Concomitant]
     Active Substance: SULFAMETHOXAZOLE\TRIMETHOPRIM
  23. SENNA-LAX [Concomitant]
     Active Substance: SENNOSIDES
  24. ATORVASTATIN [Concomitant]
     Active Substance: ATORVASTATIN
  25. PREDNISONE. [Concomitant]
     Active Substance: PREDNISONE
  26. ALBUTEROL SULFATE AND IPRATROPIUM BROMIDE [Concomitant]
     Active Substance: ALBUTEROL SULFATE\IPRATROPIUM BROMIDE
  27. FAMOTIDINE. [Concomitant]
     Active Substance: FAMOTIDINE
  28. VALGANCICLOVIR. [Concomitant]
     Active Substance: VALGANCICLOVIR
  29. METOPROLOL. [Concomitant]
     Active Substance: METOPROLOL

REACTIONS (4)
  - Off label use [Not Recovered/Not Resolved]
  - Ageusia [Not Recovered/Not Resolved]
  - Weight decreased [Not Recovered/Not Resolved]
  - Lung transplant [Unknown]

NARRATIVE: CASE EVENT DATE: 20180831
